FAERS Safety Report 14147180 (Version 1)
Quarter: 2017Q4

REPORT INFORMATION
  Report Type: Spontaneous
  Country: FR (occurrence: FR)
  Receive Date: 20171031
  Receipt Date: 20171031
  Transmission Date: 20180321
  Serious: Yes (Other)
  Sender: FDA-Public Use
  Company Number: FR-MYLANLABS-2017M1067568

PATIENT
  Age: 39 Year
  Sex: Male

DRUGS (2)
  1. BUPIVACAINE MYLAN 20 MG/4 ML, INTRARACHIDIENNE [Suspect]
     Active Substance: BUPIVACAINE
     Indication: SPINAL ANAESTHESIA
     Dosage: 10 MG, UNK
  2. SUFENTANIL MYLAN 10MCG/2ML, SOLUTION FOR INJECTION [Suspect]
     Active Substance: SUFENTANIL
     Indication: SPINAL ANAESTHESIA
     Dosage: 3 MCG, UNK

REACTIONS (5)
  - Anaesthetic complication [Recovered/Resolved]
  - Formication [Recovered/Resolved]
  - Incorrect route of drug administration [Recovered/Resolved]
  - Drug ineffective [Unknown]
  - Cauda equina syndrome [Recovered/Resolved]

NARRATIVE: CASE EVENT DATE: 2017
